FAERS Safety Report 5150605-8 (Version None)
Quarter: 2006Q4

REPORT INFORMATION
  Report Type: 
  Country: None (occurrence: None)
  Receive Date: 20061114
  Receipt Date: 20061108
  Transmission Date: 20070319
  Serious: Yes (Hospitalization)
  Sender: FDA-Public Use
  Company Number: PL-MERCK-0611POL00002

PATIENT

DRUGS (2)
  1. SINGULAIR [Suspect]
     Route: 065
  2. IMMUNOTHERAPY (UNSPECIFIED) [Suspect]
     Route: 065

REACTIONS (2)
  - CONVULSION [None]
  - SYNCOPE [None]
